FAERS Safety Report 8708009 (Version 5)
Quarter: 2012Q4

REPORT INFORMATION
  Report Type: 
  Country: JP (occurrence: JP)
  Receive Date: 20120806
  Receipt Date: 20121008
  Transmission Date: 20130627
  Serious: Yes (Hospitalization, Other)
  Sender: FDA-Public Use
  Company Number: JP-CELGENEUS-087-21880-12072850

PATIENT
  Age: 58 Year
  Sex: Female
  Weight: 44.7 kg

DRUGS (7)
  1. REVLIMID [Suspect]
     Indication: MULTIPLE MYELOMA
     Dosage: 15 Milligram
     Route: 048
     Dates: start: 20120110, end: 20120227
  2. REVLIMID [Suspect]
     Dosage: 10 Milligram
     Route: 048
     Dates: start: 20120306, end: 20120717
  3. LENADEX [Suspect]
     Indication: MULTIPLE MYELOMA
     Dosage: 20 Milligram
     Route: 048
     Dates: start: 20120110, end: 20120717
  4. ENDOXAN [Concomitant]
     Indication: MULTIPLE MYELOMA
     Dosage: 50 Milligram
     Route: 065
     Dates: start: 20120110, end: 20120227
  5. ENDOXAN [Concomitant]
     Dosage: 50 Milligram
     Route: 065
     Dates: start: 20120306, end: 20120717
  6. CELECOX [Concomitant]
     Indication: PAIN MANAGEMENT
     Dosage: 200 Milligram
     Route: 048
     Dates: start: 201001
  7. LIVALO [Concomitant]
     Indication: HYPERLIPIDEMIA
     Dosage: 1 Milligram
     Route: 048
     Dates: start: 201001

REACTIONS (1)
  - Fanconi syndrome acquired [Not Recovered/Not Resolved]
